FAERS Safety Report 11308072 (Version 1)
Quarter: 2015Q3

REPORT INFORMATION
  Report Type: Spontaneous
  Country: US (occurrence: US)
  Receive Date: 20150724
  Receipt Date: 20150724
  Transmission Date: 20151125
  Serious: Yes (Hospitalization)
  Sender: FDA-Public Use
  Company Number: US-ALKEM-001090

PATIENT
  Age: 71 Year
  Sex: Female

DRUGS (1)
  1. HYDRALAZINE [Suspect]
     Active Substance: HYDRALAZINE HYDROCHLORIDE
     Indication: PRODUCT USED FOR UNKNOWN INDICATION

REACTIONS (8)
  - Dysphonia [Unknown]
  - Respiratory tract oedema [Unknown]
  - Gastrointestinal haemorrhage [Unknown]
  - Vasculitis [Unknown]
  - Odynophagia [Unknown]
  - Gastrointestinal tract mucosal pigmentation [Unknown]
  - Mouth ulceration [Unknown]
  - Dermatitis bullous [Unknown]
